FAERS Safety Report 9463036 (Version 1)
Quarter: 2013Q3

REPORT INFORMATION
  Report Type: Report from Study
  Country: CA (occurrence: CA)
  Receive Date: 20130816
  Receipt Date: 20130816
  Transmission Date: 20140515
  Serious: Yes (Hospitalization, Other)
  Sender: FDA-Public Use
  Company Number: CA-ABBOTT-13P-028-1131822-00

PATIENT
  Age: 26 Year
  Sex: Male
  Weight: 68.1 kg

DRUGS (2)
  1. HUMIRA [Suspect]
     Indication: CROHN^S DISEASE
     Route: 058
     Dates: start: 20121004, end: 20130302
  2. CHOLESTYRAMINE [Concomitant]
     Indication: CROHN^S DISEASE
     Dosage: IF NEEDED
     Route: 048

REACTIONS (3)
  - Ileal stenosis [Recovered/Resolved]
  - Haematochezia [Recovered/Resolved]
  - Blood iron decreased [Unknown]
